FAERS Safety Report 24524814 (Version 2)
Quarter: 2024Q4

REPORT INFORMATION
  Report Type: Report from Study
  Country: US (occurrence: US)
  Receive Date: 20241019
  Receipt Date: 20241029
  Transmission Date: 20250114
  Serious: Yes (Other)
  Sender: ABBVIE
  Company Number: US-ABBVIE-5921944

PATIENT
  Sex: Female

DRUGS (3)
  1. SKYRIZI [Suspect]
     Active Substance: RISANKIZUMAB-RZAA
     Indication: Psoriasis
     Dosage: WEEK 0,?FORM STRENGTH: 150MG/ML
     Route: 058
     Dates: start: 20240524, end: 20240524
  2. SKYRIZI [Suspect]
     Active Substance: RISANKIZUMAB-RZAA
     Dosage: WEEK 4,?FORM STRENGTH: 150MG/ML
     Route: 058
     Dates: start: 20240704, end: 20240704
  3. SKYRIZI [Suspect]
     Active Substance: RISANKIZUMAB-RZAA
     Dosage: FORM STRENGTH: 150MG/ML
     Route: 058
     Dates: start: 20240926

REACTIONS (10)
  - Anaphylactic reaction [Unknown]
  - Cellulitis [Unknown]
  - Arthropod sting [Unknown]
  - Cellulitis [Recovered/Resolved]
  - Troponin increased [Unknown]
  - Chest pain [Recovered/Resolved]
  - Pain [Recovering/Resolving]
  - Burning sensation [Recovering/Resolving]
  - Wound complication [Recovered/Resolved]
  - Peripheral swelling [Unknown]

NARRATIVE: CASE EVENT DATE: 20240101
